FAERS Safety Report 23815541 (Version 1)
Quarter: 2024Q2

REPORT INFORMATION
  Report Type: Spontaneous
  Country: US (occurrence: None)
  Receive Date: 20240503
  Receipt Date: 20240503
  Transmission Date: 20240716
  Serious: No
  Sender: FDA-Public Use
  Company Number: 2024A101336

PATIENT
  Age: 83 Year
  Sex: Female

DRUGS (1)
  1. TAGRISSO [Suspect]
     Active Substance: OSIMERTINIB
     Route: 048
     Dates: start: 202402

REACTIONS (3)
  - Oral infection [Unknown]
  - Cardiac disorder [Unknown]
  - Dyspnoea [Unknown]
